FAERS Safety Report 8264236-4 (Version None)
Quarter: 2012Q2

REPORT INFORMATION
  Report Type: 
  Country: None (occurrence: None)
  Receive Date: 20120406
  Receipt Date: 20120328
  Transmission Date: 20120825
  Serious: Yes (Other)
  Sender: FDA-Public Use
  Company Number: CA-JNJFOC-20120315095

PATIENT
  Sex: Female
  Weight: 55 kg

DRUGS (6)
  1. CALCIUM AND VITAMIN D [Concomitant]
     Route: 065
  2. REMICADE [Suspect]
     Indication: PRODUCT USED FOR UNKNOWN INDICATION
     Route: 042
  3. PURINETHOL [Concomitant]
     Route: 065
  4. EFFEXOR [Concomitant]
     Route: 065
  5. VITAMIN B-12 [Concomitant]
     Route: 065
  6. SYNTHROID [Concomitant]
     Route: 065

REACTIONS (2)
  - DIARRHOEA [None]
  - MIGRAINE [None]
